FAERS Safety Report 9886154 (Version 1)
Quarter: 2014Q1

REPORT INFORMATION
  Report Type: Spontaneous
  Country: US (occurrence: US)
  Receive Date: 20140210
  Receipt Date: 20140210
  Transmission Date: 20141002
  Serious: No
  Sender: FDA-Public Use
  Company Number: US-BAXTER-2014BAX005724

PATIENT
  Sex: Male

DRUGS (8)
  1. DIANEAL LOW CALCIUM [Suspect]
     Indication: RENAL FAILURE CHRONIC
     Route: 033
     Dates: start: 20120924, end: 201304
  2. DIANEAL LOW CALCIUM [Suspect]
     Route: 033
     Dates: start: 20120924, end: 201304
  3. DIANEAL LOW CALCIUM [Suspect]
     Route: 033
     Dates: start: 20131223
  4. DIANEAL LOW CALCIUM [Suspect]
     Route: 033
     Dates: start: 20131223
  5. DIANEAL LOW CALCIUM [Suspect]
     Indication: RENAL FAILURE CHRONIC
     Route: 033
     Dates: start: 20120924, end: 201304
  6. DIANEAL LOW CALCIUM [Suspect]
     Route: 033
     Dates: start: 20120924, end: 201304
  7. DIANEAL LOW CALCIUM [Suspect]
     Route: 033
     Dates: start: 20131223
  8. DIANEAL LOW CALCIUM [Suspect]
     Route: 033
     Dates: start: 20131223

REACTIONS (1)
  - Inguinal hernia [Recovering/Resolving]
